FAERS Safety Report 5657119-7 (Version None)
Quarter: 2008Q1

REPORT INFORMATION
  Report Type: 
  Country: None (occurrence: None)
  Receive Date: 20080310
  Receipt Date: 20080229
  Transmission Date: 20080703
  Serious: Yes (Other)
  Sender: FDA-Public Use
  Company Number: AU-JNJFOC-20080301835

PATIENT
  Sex: Male

DRUGS (7)
  1. TRAMADOL HCL [Suspect]
     Indication: DRUG USE FOR UNKNOWN INDICATION
     Route: 048
  2. PANADEINE [Suspect]
     Indication: DRUG USE FOR UNKNOWN INDICATION
     Route: 065
  3. NORMISON [Suspect]
     Route: 065
  4. NORMISON [Suspect]
     Indication: DRUG USE FOR UNKNOWN INDICATION
     Route: 065
  5. XANAX [Suspect]
     Route: 065
  6. XANAX [Suspect]
     Indication: DRUG USE FOR UNKNOWN INDICATION
     Route: 065
  7. ZOLOFT [Suspect]
     Indication: DRUG USE FOR UNKNOWN INDICATION
     Route: 065

REACTIONS (2)
  - GAIT DISTURBANCE [None]
  - MEMORY IMPAIRMENT [None]
